FAERS Safety Report 7044690-6 (Version None)
Quarter: 2010Q4

REPORT INFORMATION
  Report Type: 
  Country: None (occurrence: None)
  Receive Date: 20101013
  Receipt Date: 20101013
  Transmission Date: 20110411
  Serious: No
  Sender: FDA-Public Use
  Company Number: None

PATIENT
  Age: 3 Month
  Sex: Male
  Weight: 5 kg

DRUGS (3)
  1. VITAMIN SHOPPE LIQUID BABY VITAMIN D3 400 IU VITAMIN SHOPPE [Suspect]
     Indication: BREAST FEEDING
     Dosage: 1 ML DAILY PO
     Route: 048
     Dates: start: 20100916, end: 20101005
  2. VITAMIN SHOPPE LIQUID BABY VITAMIN D3 400 IU VITAMIN SHOPPE [Suspect]
     Indication: MEDICAL DIET
     Dosage: 1 ML DAILY PO
     Route: 048
     Dates: start: 20100916, end: 20101005
  3. VITAMIN SHOPPE LIQUID BABY VITAMIN D3 400 IU VITAMIN SHOPPE [Suspect]
     Indication: VITAMIN D
     Dosage: 1 ML DAILY PO
     Route: 048
     Dates: start: 20100916, end: 20101005

REACTIONS (5)
  - DRUG TOXICITY [None]
  - MEDICATION ERROR [None]
  - OVERDOSE [None]
  - PRODUCT DROPPER ISSUE [None]
  - PRODUCT LABEL ISSUE [None]
